FAERS Safety Report 14126798 (Version 1)
Quarter: 2017Q4

REPORT INFORMATION
  Report Type: Spontaneous
  Country: GB (occurrence: GB)
  Receive Date: 20171025
  Receipt Date: 20171025
  Transmission Date: 20180321
  Serious: Yes (Death, Other)
  Sender: FDA-Public Use
  Company Number: GB-INTERNATIONAL MEDICATION SYSTEMS, LIMITED-2031482

PATIENT
  Sex: Male

DRUGS (4)
  1. BUTEC TRANSDERMAL [Suspect]
     Active Substance: BUPRENORPHINE
     Indication: EYE PAIN
  2. MORPHINE SULFATE. [Suspect]
     Active Substance: MORPHINE SULFATE
  3. HEROIN [Suspect]
     Active Substance: DIAMORPHINE
  4. CODEINE [Suspect]
     Active Substance: CODEINE

REACTIONS (4)
  - Drug dependence [Fatal]
  - Toxicity to various agents [Fatal]
  - Overdose [Fatal]
  - Death [Fatal]
